FAERS Safety Report 24284227 (Version 1)
Quarter: 2024Q3

REPORT INFORMATION
  Report Type: Spontaneous
  Country: GB (occurrence: GB)
  Receive Date: 20240905
  Receipt Date: 20240905
  Transmission Date: 20241017
  Serious: Yes (Other)
  Sender: DEXCEL
  Company Number: None

PATIENT
  Age: 93 Year
  Sex: Male

DRUGS (15)
  1. NACSYSNACSYS (Specific MP Group PGR5433229) [Concomitant]
     Dosage: (REPLACES CARBOCISTEINE),28 TABLET
  2. Easyhaler Salbutamol sulfate 100micrograms/dose dry powder inhaler ... [Concomitant]
     Dosage: EMERGENCY USE ONLY: ONE OR TWO PUFFS TO BE INHALED FOUR TIMES A DAY WHEN REQUIRED,1 X 200 DOSE
     Route: 055
  3. Medihoney barrier cream (Integra NeuroSciences Ltd)NON-MEDICINAL PR... [Concomitant]
     Dosage: AS DIRECTED?50 GRAM
  4. ParacetamolPARACETAMOL (Specific Substance SUB155) [Concomitant]
     Dosage: TWO TO BE TAKEN MORNING AND AT BEDTIME
  5. FamotidineFAMOTIDINE (Specific Substance SUB5582) [Concomitant]
     Dosage: 28 TABLET? IN THE MORNING
  6. Ibuprofen 10% gelIBUPROFEN (Specific MP Group PGR28481419) [Concomitant]
     Dosage: APPLY UP TO THREE TIMES A DAY WHEN REQUIRED,100 GRAM
  7. TiotropiumTIOTROPIUM [Concomitant]
  8. Clinitas Carbomer 0.2% eye gel (Altacor Ltd)NON-MEDICINAL PRODUCT [Concomitant]
     Dosage: DROP TWICE A DAY IN LEFT EYE OR AS NEEDED,10 GRAM
  9. OMEPRAZOLE [Interacting]
     Active Substance: OMEPRAZOLE
     Dates: start: 20240813
  10. TamsulosinTAMSULOSIN (Specific Substance SUB7202) [Concomitant]
     Dosage: IN THE MORNING,28 CAPSULE
  11. LOSARTAN [Interacting]
     Active Substance: LOSARTAN\LOSARTAN POTASSIUM
  12. Trelegy Ellipta 92micrograms/dose / 55micrograms/dose / 22microgram... [Concomitant]
     Dosage: PUFF TO BE INHALED EACH MORNING (REPLACES BOTH FOBUSMIX AND TIOTROPIUM)?1 X 30 DOSE
     Route: 055
  13. BUMETANIDE [Interacting]
     Active Substance: BUMETANIDE
  14. Levothyroxine sodiumLEVOTHYROXINE SODIUM [Concomitant]
     Dosage: 28 TABLET
  15. CarbocisteineCARBOCISTEINE (Specific Substance SUB1506) [Concomitant]

REACTIONS (2)
  - Hyponatraemia [Recovered/Resolved]
  - Drug interaction [Unknown]
